FAERS Safety Report 14819301 (Version 1)
Quarter: 2018Q2

REPORT INFORMATION
  Report Type: Spontaneous
  Country: JP (occurrence: JP)
  Receive Date: 20180427
  Receipt Date: 20180427
  Transmission Date: 20180711
  Serious: Yes (Other)
  Sender: FDA-Public Use
  Company Number: JP-BAYER-2018-075696

PATIENT
  Age: 35 Year
  Sex: Female

DRUGS (6)
  1. HEPARIN [Concomitant]
     Active Substance: HEPARIN SODIUM
     Indication: PREMATURE DELIVERY
  2. PREDNISOLONE. [Concomitant]
     Active Substance: PREDNISOLONE
     Indication: PLATELET COUNT DECREASED
  3. BAYASPIRIN 100 MG [Suspect]
     Active Substance: ASPIRIN
     Indication: PREMATURE DELIVERY
  4. HEPARIN [Concomitant]
     Active Substance: HEPARIN SODIUM
     Indication: HABITUAL ABORTION
  5. BAYASPIRIN 100 MG [Suspect]
     Active Substance: ASPIRIN
     Indication: HABITUAL ABORTION
     Route: 048
  6. GLOBULIN N [IMMUNOGLOBULIN HUMAN NORMAL] [Concomitant]

REACTIONS (5)
  - Off label use [None]
  - Exposure during pregnancy [None]
  - Foetal death [None]
  - Product use in unapproved indication [None]
  - Gestational hypertension [None]
